FAERS Safety Report 7327782-3 (Version None)
Quarter: 2011Q1

REPORT INFORMATION
  Report Type: 
  Country: None (occurrence: None)
  Receive Date: 20110224
  Receipt Date: 20110224
  Transmission Date: 20110831
  Serious: No
  Sender: FDA-Public Use
  Company Number: None

PATIENT
  Age: 52 Year
  Sex: Male

DRUGS (1)
  1. REGLAN [Suspect]
     Indication: LIVER INJURY
     Dates: start: 20090220, end: 20090319

REACTIONS (2)
  - HEPATITIS CHOLESTATIC [None]
  - HEPATIC NECROSIS [None]
